FAERS Safety Report 7000542-9 (Version None)
Quarter: 2010Q3

REPORT INFORMATION
  Report Type: 
  Country: None (occurrence: None)
  Receive Date: 20100920
  Receipt Date: 20100301
  Transmission Date: 20110219
  Serious: Yes (Other)
  Sender: FDA-Public Use
  Company Number: US-ASTRAZENECA-2009UW20632

PATIENT
  Sex: Male

DRUGS (8)
  1. SEROQUEL [Suspect]
     Dosage: 100 TO 200 MG
     Route: 048
     Dates: start: 20080101
  2. XANAX [Concomitant]
     Indication: ANXIETY
  3. FINASTERIDE [Concomitant]
     Indication: RENAL DISORDER
  4. CELEXA [Concomitant]
     Indication: AFFECTIVE DISORDER
  5. GLIPIZIDE [Concomitant]
     Indication: DIABETES MELLITUS
  6. DIOVAN HCT [Concomitant]
     Indication: BLOOD PRESSURE
     Dosage: 0.5/12.5 DAILY
  7. METFORMIN [Concomitant]
     Indication: DIABETES MELLITUS
  8. SIMVASTATIN [Concomitant]
     Indication: BLOOD CHOLESTEROL

REACTIONS (3)
  - DIABETES MELLITUS [None]
  - KETOACIDOSIS [None]
  - PANCREATITIS [None]
